FAERS Safety Report 11094902 (Version 1)
Quarter: 2015Q2

REPORT INFORMATION
  Report Type: Spontaneous
  Country: GB (occurrence: GB)
  Receive Date: 20150506
  Receipt Date: 20150506
  Transmission Date: 20150821
  Serious: Yes (Other)
  Sender: FDA-Public Use
  Company Number: GB-INCYTE CORPORATION-2015IN001926

PATIENT
  Age: 78 Year
  Sex: Male

DRUGS (1)
  1. INC424 [Suspect]
     Active Substance: RUXOLITINIB
     Indication: MYELOFIBROSIS
     Dosage: 15 MG, BID
     Route: 065

REACTIONS (11)
  - Acute myeloid leukaemia [Unknown]
  - Dizziness [Recovering/Resolving]
  - Anaemia [Recovering/Resolving]
  - Splenomegaly [Recovering/Resolving]
  - Pyrexia [Recovering/Resolving]
  - Drug withdrawal syndrome [Recovering/Resolving]
  - Renal impairment [Recovering/Resolving]
  - Ventricular tachycardia [Recovering/Resolving]
  - Palpitations [Recovering/Resolving]
  - Hypotension [Recovering/Resolving]
  - Thrombocytopenia [Unknown]
